FAERS Safety Report 7178821-4 (Version None)
Quarter: 2010Q4

REPORT INFORMATION
  Report Type: 
  Country: None (occurrence: None)
  Receive Date: 20101221
  Receipt Date: 20101213
  Transmission Date: 20110411
  Serious: Yes (Other)
  Sender: FDA-Public Use
  Company Number: US-JNJFOC-20100403837

PATIENT
  Sex: Male

DRUGS (1)
  1. LEVAQUIN [Suspect]
     Indication: BRONCHITIS
     Route: 048

REACTIONS (5)
  - BURSITIS [None]
  - DRUG HYPERSENSITIVITY [None]
  - LIGAMENT RUPTURE [None]
  - TENDON RUPTURE [None]
  - TENDONITIS [None]
